FAERS Safety Report 5739124-5 (Version None)
Quarter: 2008Q2

REPORT INFORMATION
  Report Type: 
  Country: None (occurrence: None)
  Receive Date: 20080515
  Receipt Date: 20080505
  Transmission Date: 20081010
  Serious: Yes (Hospitalization, Congenital Anomaly)
  Sender: FDA-Public Use
  Company Number: A0699225A

PATIENT
  Sex: Male
  Weight: 3.6 kg

DRUGS (4)
  1. PAXIL [Suspect]
     Indication: ANXIETY
  2. PAXIL CR [Suspect]
     Indication: ANXIETY
  3. KLONOPIN [Concomitant]
  4. VITAMIN TAB [Concomitant]

REACTIONS (10)
  - ARTERIAL DISORDER [None]
  - ATRIAL SEPTAL DEFECT [None]
  - CONGENITAL PULMONARY ARTERY ANOMALY [None]
  - DRUG EXPOSURE DURING PREGNANCY [None]
  - LEFT VENTRICULAR HYPERTROPHY [None]
  - MATERNAL DRUGS AFFECTING FOETUS [None]
  - PULMONARY VALVE STENOSIS CONGENITAL [None]
  - SHOULDER DYSTOCIA [None]
  - TRANSPOSITION OF THE GREAT VESSELS [None]
  - TRICUSPID VALVE INCOMPETENCE [None]
